FAERS Safety Report 8847811 (Version 1)
Quarter: 2012Q4

REPORT INFORMATION
  Report Type: 
  Country: US (occurrence: US)
  Receive Date: 20121018
  Receipt Date: 20121018
  Transmission Date: 20130627
  Serious: No
  Sender: FDA-Public Use
  Company Number: US-ASTRAZENECA-2012SE77041

PATIENT
  Age: 78 Year
  Sex: Female
  Weight: 61.2 kg

DRUGS (2)
  1. FASLODEX [Suspect]
     Indication: BREAST CANCER METASTATIC
     Route: 030
     Dates: start: 201207
  2. THYROID MEDICATION [Concomitant]
     Indication: THYROID DISORDER

REACTIONS (6)
  - Weight decreased [Unknown]
  - Basedow^s disease [Unknown]
  - Gait disturbance [Unknown]
  - Musculoskeletal pain [Unknown]
  - Back pain [Unknown]
  - Discomfort [Unknown]
